FAERS Safety Report 22331369 (Version 1)
Quarter: 2023Q2

REPORT INFORMATION
  Report Type: Report from Study
  Country: CA (occurrence: CA)
  Receive Date: 20230517
  Receipt Date: 20230517
  Transmission Date: 20230722
  Serious: Yes (Hospitalization)
  Sender: FDA-Public Use
  Company Number: CA-GLAXOSMITHKLINE-CA2023AMR051823

PATIENT

DRUGS (19)
  1. MEPOLIZUMAB [Suspect]
     Active Substance: MEPOLIZUMAB
     Indication: Asthma
     Dosage: 100 MG, Q4W EVERY 4 WEEKS
     Route: 058
     Dates: start: 20201130
  2. ASPIRIN [Concomitant]
     Active Substance: ASPIRIN
     Indication: Product used for unknown indication
     Dosage: 1 DF, QD (1 TABLET 81 MG PO ONCE PER DAY)
     Route: 048
     Dates: start: 20221216
  3. TYLENOL [Concomitant]
     Active Substance: ACETAMINOPHEN
     Indication: Product used for unknown indication
     Dosage: 2 DF,(2 TABLETS = 1000 MG PO PRN (MAX. 4G/DAY))
     Route: 048
     Dates: start: 20221216
  4. ALENDRONATE [Concomitant]
     Active Substance: ALENDRONATE SODIUM
     Indication: Product used for unknown indication
     Dosage: 1 DF,(1 TABLET= 70 MG ONCE PER WEEK ON MONDAY)
     Dates: start: 20221216
  5. ATORVASTATIN [Concomitant]
     Active Substance: ATORVASTATIN
     Indication: Product used for unknown indication
     Dosage: 1 DF, QD (1 TABLET = 20 MG PO AT BEDTIME)
     Route: 048
     Dates: start: 20221216
  6. CALCIUM CARBONATE [Concomitant]
     Active Substance: CALCIUM CARBONATE
     Indication: Product used for unknown indication
     Dosage: 1 DF, QD (1 TABLET= 500 MG PO ONCE PER DAY WITH FOOD)
     Route: 048
     Dates: start: 20221216
  7. CHOLECALCIFEROL [Concomitant]
     Active Substance: CHOLECALCIFEROL
     Indication: Product used for unknown indication
     Dosage: 1 DF, (1 TABLET= 10000 IU PO ONCE PER WEEK , ON MONDAY)
     Route: 048
     Dates: start: 20221216
  8. CITALOPRAM [Concomitant]
     Active Substance: CITALOPRAM HYDROBROMIDE
     Indication: Product used for unknown indication
     Dosage: 1 DF, QD (1 TABLET= 20 MG PO ONCE PER DAY)
     Route: 048
     Dates: start: 20221216
  9. CYANOCOBALAMIN [Concomitant]
     Active Substance: CYANOCOBALAMIN
     Indication: Product used for unknown indication
     Dosage: 1 DF, QD (1 TABLET= 200 MG PO ONCE PER DAY)
     Route: 048
     Dates: start: 20221216
  10. ENOXAPARIN [Concomitant]
     Active Substance: ENOXAPARIN
     Indication: Product used for unknown indication
     Dosage: 40 MG, QD (0.4 ML = 40 MG SC AT 24 HOURS)
     Route: 058
     Dates: start: 20221216
  11. FERROUS FUMARATE [Concomitant]
     Active Substance: FERROUS FUMARATE
     Indication: Product used for unknown indication
     Dosage: 300 MG,(300 MG PO 3 TIMES PER WEEK ON MONDAY, WEDNESDAY, FRIDAY)
     Route: 048
     Dates: end: 20221218
  12. SYMBICORT [Concomitant]
     Active Substance: BUDESONIDE\FORMOTEROL FUMARATE DIHYDRATE
     Indication: Product used for unknown indication
     Dosage: UNK, (6 MCG+200 MCG/DOSE/PD INH)
     Dates: start: 20221216, end: 20221218
  13. HYDROCHLOROTHIAZIDE [Concomitant]
     Active Substance: HYDROCHLOROTHIAZIDE
     Indication: Product used for unknown indication
     Dosage: 12.5 MG, QD (12.5 MG TABLET PO ONCE PER DAY)
     Route: 048
     Dates: end: 20221218
  14. IRBESARTAN [Concomitant]
     Active Substance: IRBESARTAN
     Indication: Product used for unknown indication
     Dosage: 75 MG, QD (75 MG PO ONCE PER DAY)
     Route: 048
     Dates: end: 20221218
  15. SYNTHROID [Concomitant]
     Active Substance: LEVOTHYROXINE SODIUM
     Indication: Product used for unknown indication
     Dosage: 1 DF,,(112 MCG TABLET PO ONCE PER DAY SAME HOUR EVERY DAY)
     Route: 048
     Dates: start: 20221216
  16. PANTOPRAZOLE [Concomitant]
     Active Substance: PANTOPRAZOLE
     Indication: Product used for unknown indication
     Dosage: 1 DF, QD (1 TABLET = 40 MG PO ONCE PER DAY)
     Route: 048
     Dates: start: 20221216
  17. LYRICA [Concomitant]
     Active Substance: PREGABALIN
     Indication: Product used for unknown indication
     Dosage: 1 DF, QD (1 CAPSULE = 50 MG PO AT BEDTIME)
     Route: 048
     Dates: start: 20221218
  18. VENTOLIN [Concomitant]
     Active Substance: ALBUTEROL SULFATE
     Indication: Product used for unknown indication
     Dosage: 2 PUFF(S), QID (2 INH = 200 MCG IN ORAL INHALATION 4 TIMES PER DAY PRN VIA AERO CHAMBER, SHAKE WELL)
     Route: 055
     Dates: start: 20221216
  19. PREDNISONE [Concomitant]
     Active Substance: PREDNISONE
     Indication: Asthma
     Dosage: UNK

REACTIONS (5)
  - Hospitalisation [Unknown]
  - Balance disorder [Unknown]
  - Fall [Unknown]
  - Skin laceration [Unknown]
  - Asthma [Unknown]
